FAERS Safety Report 8894241 (Version 1)
Quarter: 2012Q4

REPORT INFORMATION
  Report Type: 
  Country: US (occurrence: US)
  Receive Date: 20121108
  Receipt Date: 20121108
  Transmission Date: 20130627
  Serious: No
  Sender: FDA-Public Use
  Company Number: US-009507513-1210USA014233

PATIENT
  Sex: Female

DRUGS (1)
  1. JANUMET [Suspect]
     Dosage: UNK
     Route: 048
     Dates: start: 20121020

REACTIONS (4)
  - Renal disorder [Unknown]
  - Abdominal distension [Unknown]
  - Abdominal pain upper [Unknown]
  - Back pain [Unknown]
